FAERS Safety Report 7549911-9 (Version None)
Quarter: 2011Q2

REPORT INFORMATION
  Report Type: 
  Country: None (occurrence: None)
  Receive Date: 20110615
  Receipt Date: 20110609
  Transmission Date: 20111010
  Serious: Yes (Other)
  Sender: FDA-Public Use
  Company Number: US-PFIZER INC-2011118297

PATIENT
  Sex: Female

DRUGS (2)
  1. FEMARA [Suspect]
     Dosage: UNK
     Route: 048
     Dates: start: 20090601
  2. PREMARIN [Suspect]
     Dosage: UNK
     Route: 048
     Dates: start: 20040101, end: 20090301

REACTIONS (4)
  - AURA [None]
  - INCORRECT DOSE ADMINISTERED [None]
  - HEADACHE [None]
  - BREAST CANCER FEMALE [None]
